FAERS Safety Report 8125289-7 (Version None)
Quarter: 2012Q1

REPORT INFORMATION
  Report Type: 
  Country: None (occurrence: None)
  Receive Date: 20120206
  Receipt Date: 20120127
  Transmission Date: 20120608
  Serious: Yes (Other)
  Sender: FDA-Public Use
  Company Number: GER/GER/12/0022841

PATIENT
  Age: 65 Year
  Sex: Male

DRUGS (1)
  1. CIPROFLOXACIN HYDROCHLORIDE [Suspect]
     Indication: INFLUENZA
     Dosage: ORAL
     Route: 048
     Dates: end: 20120123

REACTIONS (2)
  - VISION BLURRED [None]
  - HYPOTONY OF EYE [None]
